FAERS Safety Report 5230791-1 (Version None)
Quarter: 2007Q1

REPORT INFORMATION
  Report Type: 
  Country: None (occurrence: None)
  Receive Date: 20070202
  Receipt Date: 20070125
  Transmission Date: 20070707
  Serious: Yes (Hospitalization, Other)
  Sender: FDA-Public Use
  Company Number: 07H-087-0311869-00

PATIENT
  Age: 93 Year
  Sex: Male

DRUGS (13)
  1. DEXMEDETOMIDINE INJECTION (DEXMEDETOMIDINE HYDROCHLORIDE INJECTION) (D [Suspect]
     Indication: SEDATIVE THERAPY
     Dosage: 0.3 MCG/KG/HR, INTRAVENOUS
     Route: 042
     Dates: start: 20051209, end: 20051210
  2. BROMHEXINE HYDROCHLORIDE (BISOLVON) (BROMHEXINE HYDROCHLORIDE) [Concomitant]
  3. DIPROPHYLLINE (NEOPHYLLIN M) (DIPROPHYLLINE) [Concomitant]
  4. CLINDAMYCIN PHOSPHATE  (DALACIN-S) (CLINDAMYCIN PHOSPHATE) [Concomitant]
  5. PANIPENEM (CARBENIN (PANIPENEM) [Concomitant]
  6. CEFOZOPRAN HYDROCHLORIDE (FIRSTCIN) (CEFOZOPRAN) [Concomitant]
  7. HUMAN SERUM ALBUMIN (ALBUMIN NORMAL HUMAN SERUM) [Concomitant]
  8. SOYBEAN OIL (INTRALIPOS) (SOYA OIL) [Concomitant]
  9. ELEMENMIC KIT-OP (ELEMENMIC) [Concomitant]
  10. FAMOTIDINE (GASTER) (FAMOTIDINE) [Concomitant]
  11. PANTHENOL (PANTOL) (PANTHENOL) [Concomitant]
  12. FULCALIQ (FULCAL IQ.2) [Concomitant]
  13. FULCALIQ (FULCAL IQ.3 [Concomitant]

REACTIONS (4)
  - ELECTROLYTE IMBALANCE [None]
  - ENDOTRACHEAL INTUBATION COMPLICATION [None]
  - HEPATIC FUNCTION ABNORMAL [None]
  - RENAL FAILURE [None]
